FAERS Safety Report 9680057 (Version 1)
Quarter: 2013Q4

REPORT INFORMATION
  Report Type: Spontaneous
  Country: US (occurrence: US)
  Receive Date: 20131110
  Receipt Date: 20131110
  Transmission Date: 20140711
  Serious: No
  Sender: FDA-Public Use
  Company Number: -SAAVPROD-MIPO-1000438

PATIENT
  Age: 61 Year
  Sex: Female

DRUGS (1)
  1. MIPOMERSEN [Suspect]
     Indication: TYPE IIA HYPERLIPIDAEMIA
     Dosage: 2 MG, QW
     Route: 059
     Dates: start: 20130526

REACTIONS (2)
  - Injection site erythema [Unknown]
  - Injection site pruritus [Recovered/Resolved]
